FAERS Safety Report 14160037 (Version 3)
Quarter: 2018Q1

REPORT INFORMATION
  Report Type: Spontaneous
  Country: JP (occurrence: JP)
  Receive Date: 20171103
  Receipt Date: 20180104
  Transmission Date: 20180508
  Serious: Yes (Hospitalization, Other)
  Sender: FDA-Public Use
  Company Number: JP-GILEAD-2015-0190138

PATIENT
  Age: 82 Year
  Sex: Female
  Weight: 35 kg

DRUGS (8)
  1. NEXIUM CAPSULE [Concomitant]
     Dosage: UNK
  2. MAGNESIUM OXIDE. [Concomitant]
     Active Substance: MAGNESIUM OXIDE
     Dosage: UNK
  3. ZEFIX [Suspect]
     Active Substance: LAMIVUDINE
     Indication: CHRONIC HEPATITIS B
     Dosage: UNK
     Route: 048
     Dates: start: 2004
  4. MAGNESIUM OXIDE. [Concomitant]
     Active Substance: MAGNESIUM OXIDE
     Dosage: UNK
  5. HEPSERA [Suspect]
     Active Substance: ADEFOVIR DIPIVOXIL
     Indication: CHRONIC HEPATITIS B
     Dosage: 10 MG, 1D
     Route: 048
     Dates: start: 2005, end: 20150305
  6. MAGNESIUM OXIDE. [Concomitant]
     Active Substance: MAGNESIUM OXIDE
     Dosage: UNK
  7. MOHRUS TAPE [Concomitant]
     Active Substance: KETOPROFEN
     Dosage: UNK
  8. MAGNESIUM OXIDE. [Concomitant]
     Active Substance: MAGNESIUM OXIDE
     Dosage: UNK

REACTIONS (14)
  - Hypophosphataemia [Recovered/Resolved]
  - Hyperphosphatasaemia [Recovered/Resolved]
  - Renal disorder [Recovering/Resolving]
  - Osteomalacia [Recovering/Resolving]
  - Hyperphosphaturia [Unknown]
  - Beta 2 microglobulin urine increased [Recovering/Resolving]
  - Acquired aminoaciduria [Unknown]
  - Hypouricaemia [Recovered/Resolved]
  - Pain [Recovered/Resolved]
  - Bone pain [Recovering/Resolving]
  - Fanconi syndrome acquired [Recovered/Resolved]
  - Renal tubular disorder [Recovering/Resolving]
  - Hepatitis [Recovered/Resolved]
  - Bone scan abnormal [Recovering/Resolving]

NARRATIVE: CASE EVENT DATE: 20150306
